FAERS Safety Report 10584491 (Version 1)
Quarter: 2014Q4

REPORT INFORMATION
  Report Type: Spontaneous
  Country: US (occurrence: None)
  Receive Date: 20141113
  Receipt Date: 20141113
  Transmission Date: 20150529
  Serious: Yes (Hospitalization, Disabling, Other)
  Sender: FDA-Public Use
  Company Number: None

PATIENT
  Age: 40 Year
  Sex: Female

DRUGS (1)
  1. KENALOG [Suspect]
     Active Substance: TRIAMCINOLONE ACETONIDE
     Indication: MYOSITIS
     Dosage: 0.5 ML, OF KENALOG 40 MG/ML, DURING A PROCEDURE, INTO THE MUSCLE
     Route: 030
     Dates: start: 20141022, end: 20141022

REACTIONS (30)
  - Insomnia [None]
  - Migraine [None]
  - Throat irritation [None]
  - Gait disturbance [None]
  - Vertigo [None]
  - Visual impairment [None]
  - Muscle spasms [None]
  - Nausea [None]
  - Agitation [None]
  - Contusion [None]
  - Myalgia [None]
  - Bradyphrenia [None]
  - Weight decreased [None]
  - Confusional state [None]
  - Mood swings [None]
  - Arthralgia [None]
  - Candida infection [None]
  - Decreased appetite [None]
  - Dizziness [None]
  - Thirst [None]
  - Injection site pain [None]
  - Injection site swelling [None]
  - Genital swelling [None]
  - Influenza like illness [None]
  - Pain [None]
  - Feeling abnormal [None]
  - Palpitations [None]
  - Vulval disorder [None]
  - Depression [None]
  - Injection site infection [None]

NARRATIVE: CASE EVENT DATE: 20141022
